FAERS Safety Report 9835445 (Version 1)
Quarter: 2014Q1

REPORT INFORMATION
  Report Type: Spontaneous
  Country: US (occurrence: US)
  Receive Date: 20140122
  Receipt Date: 20140122
  Transmission Date: 20141002
  Serious: No
  Sender: FDA-Public Use
  Company Number: US-BRISTOL-MYERS SQUIBB COMPANY-19618834

PATIENT
  Age: 78 Year
  Sex: Male
  Weight: 81.63 kg

DRUGS (2)
  1. ELIQUIS [Suspect]
     Indication: CARDIAC PACEMAKER REPLACEMENT
  2. DOXYCYCLINE [Concomitant]
     Indication: ARTHROPATHY

REACTIONS (1)
  - Asthenia [Unknown]
